FAERS Safety Report 11150518 (Version 1)
Quarter: 2015Q2

REPORT INFORMATION
  Report Type: Spontaneous
  Country: US (occurrence: US)
  Receive Date: 20150601
  Receipt Date: 20150601
  Transmission Date: 20150821
  Serious: No
  Sender: FDA-Public Use
  Company Number: US-009507513-1505USA015811

PATIENT
  Sex: Female

DRUGS (1)
  1. RAGWITEK [Suspect]
     Active Substance: AMBROSIA ARTEMISIIFOLIA POLLEN
     Indication: SEASONAL ALLERGY
     Dosage: 1 TABLET, ONCE DAILY
     Route: 060
     Dates: start: 20150521

REACTIONS (2)
  - Ear pruritus [Unknown]
  - Oral pruritus [Unknown]

NARRATIVE: CASE EVENT DATE: 20150521
